FAERS Safety Report 24173937 (Version 1)
Quarter: 2024Q3

REPORT INFORMATION
  Report Type: Spontaneous
  Country: BE (occurrence: BE)
  Receive Date: 20240805
  Receipt Date: 20240805
  Transmission Date: 20241017
  Serious: Yes (Other)
  Sender: MYLAN
  Company Number: BE-MYLANLABS-2024M1066214

PATIENT
  Age: 45 Year
  Sex: Male

DRUGS (5)
  1. EFFEXOR XR [Suspect]
     Active Substance: VENLAFAXINE HYDROCHLORIDE
     Indication: Product used for unknown indication
     Dosage: UNK
     Route: 065
  2. EFFEXOR XR [Suspect]
     Active Substance: VENLAFAXINE HYDROCHLORIDE
     Indication: Fatigue
     Dosage: UNK
     Route: 065
     Dates: start: 201009
  3. EFFEXOR XR [Suspect]
     Active Substance: VENLAFAXINE HYDROCHLORIDE
     Dosage: 75 MILLIGRAM, QD (37.5 IN THE MORNING AND 37.5 IN THE EVENING)
     Route: 065
  4. EFFEXOR XR [Suspect]
     Active Substance: VENLAFAXINE HYDROCHLORIDE
     Dosage: UNK (150)
     Route: 065
     Dates: start: 202303
  5. PROZAC [Suspect]
     Active Substance: FLUOXETINE HYDROCHLORIDE
     Indication: Product used for unknown indication
     Dosage: UNK
     Route: 065

REACTIONS (19)
  - Suicidal ideation [Unknown]
  - Wrong technique in product usage process [Unknown]
  - Product quality issue [Unknown]
  - Withdrawal syndrome [Unknown]
  - Electric shock sensation [Unknown]
  - Dizziness [Unknown]
  - Malaise [Unknown]
  - Tremor [Recovered/Resolved]
  - Dyskinesia [Unknown]
  - Depression [Recovered/Resolved]
  - Restless legs syndrome [Unknown]
  - Akathisia [Unknown]
  - Headache [Unknown]
  - Insomnia [Recovered/Resolved]
  - Arthralgia [Unknown]
  - Tinnitus [Recovered/Resolved]
  - Panic attack [Unknown]
  - Disturbance in attention [Unknown]
  - Vitreous floaters [Recovered/Resolved]

NARRATIVE: CASE EVENT DATE: 20190301
